FAERS Safety Report 18809852 (Version 1)
Quarter: 2021Q1

REPORT INFORMATION
  Report Type: Spontaneous
  Country: US (occurrence: US)
  Receive Date: 20210129
  Receipt Date: 20210129
  Transmission Date: 20210419
  Serious: Yes (Hospitalization)
  Sender: FDA-Public Use
  Company Number: US-MYLANLABS-2021M1005482

PATIENT
  Age: 50 Year
  Sex: Male

DRUGS (1)
  1. COLCHICINE. [Suspect]
     Active Substance: COLCHICINE
     Indication: GOUT
     Dosage: UNK UNK, QD
     Route: 065

REACTIONS (2)
  - Pneumonia legionella [Recovering/Resolving]
  - Rhabdomyolysis [Recovering/Resolving]
